FAERS Safety Report 25136218 (Version 1)
Quarter: 2025Q1

REPORT INFORMATION
  Report Type: Spontaneous
  Country: CN (occurrence: CN)
  Receive Date: 20250328
  Receipt Date: 20250328
  Transmission Date: 20250408
  Serious: Yes (Life-Threatening, Hospitalization, Other)
  Sender: ORGANON
  Company Number: CN-ORGANON-O2503CHN002710

PATIENT
  Age: 69 Year
  Sex: Male
  Weight: 55 kg

DRUGS (4)
  1. SINGULAIR [Suspect]
     Active Substance: MONTELUKAST SODIUM
     Indication: Asthma
     Dosage: 10MG, QD, ORALLY
     Route: 048
     Dates: start: 20250311, end: 20250324
  2. ENALAPRIL MALEATE [Suspect]
     Active Substance: ENALAPRIL MALEATE
     Indication: Pulmonary hypertension
     Dosage: 10MG, BID, ORALLY
     Route: 048
     Dates: start: 20250311, end: 20250324
  3. LEVOCETIRIZINE HYDROCHLORIDE [Concomitant]
     Active Substance: LEVOCETIRIZINE HYDROCHLORIDE
     Indication: Chronic obstructive pulmonary disease
     Dosage: 5MG, QD, ORALLY
     Route: 048
     Dates: start: 20250318, end: 20250324
  4. LEVOCETIRIZINE HYDROCHLORIDE [Concomitant]
     Active Substance: LEVOCETIRIZINE HYDROCHLORIDE
     Indication: Lower respiratory tract infection

REACTIONS (7)
  - Arrhythmia [Recovering/Resolving]
  - Asthenia [Recovering/Resolving]
  - Hypoaesthesia [Recovering/Resolving]
  - Chills [Recovering/Resolving]
  - Pyrexia [Recovering/Resolving]
  - Hypotension [Recovering/Resolving]
  - Palpitations [Recovering/Resolving]

NARRATIVE: CASE EVENT DATE: 20250326
